FAERS Safety Report 23182363 (Version 1)
Quarter: 2023Q4

REPORT INFORMATION
  Report Type: Spontaneous
  Country: US (occurrence: None)
  Receive Date: 20231114
  Receipt Date: 20231114
  Transmission Date: 20240109
  Serious: Yes (unspecified)
  Sender: FDA-Public Use
  Company Number: None

PATIENT
  Age: 46 Year
  Sex: Female

DRUGS (1)
  1. COSENTYX [Suspect]
     Active Substance: SECUKINUMAB
     Dosage: OTHER FREQUENCY : EVERY 4 ;?
     Dates: start: 20230622

REACTIONS (3)
  - Fall [None]
  - Ankle fracture [None]
  - Intentional dose omission [None]

NARRATIVE: CASE EVENT DATE: 20231026
